FAERS Safety Report 22145185 (Version 2)
Quarter: 2023Q1

REPORT INFORMATION
  Report Type: Spontaneous
  Country: US (occurrence: US)
  Receive Date: 20230328
  Receipt Date: 20230331
  Transmission Date: 20230418
  Serious: Yes (Hospitalization, Other)
  Sender: FDA-Public Use
  Company Number: US-SA-SAC20230324001013

PATIENT
  Age: 45 Year
  Sex: Female

DRUGS (1)
  1. LEMTRADA [Suspect]
     Active Substance: ALEMTUZUMAB
     Dosage: UNK
     Route: 042
     Dates: start: 202303, end: 202303

REACTIONS (5)
  - Coronary artery occlusion [Unknown]
  - Myocardial infarction [Unknown]
  - Loss of consciousness [Unknown]
  - Chest pain [Unknown]
  - Cold sweat [Unknown]

NARRATIVE: CASE EVENT DATE: 20230301
